FAERS Safety Report 24068753 (Version 1)
Quarter: 2024Q3

REPORT INFORMATION
  Report Type: Spontaneous
  Country: US (occurrence: US)
  Receive Date: 20240710
  Receipt Date: 20240710
  Transmission Date: 20241017
  Serious: No
  Sender: ROCHE
  Company Number: US-ROCHE-3506356

PATIENT
  Age: 79 Year
  Sex: Female

DRUGS (3)
  1. VABYSMO [Suspect]
     Active Substance: FARICIMAB\FARICIMAB-SVOA
     Indication: Neovascular age-related macular degeneration
     Dosage: ON /JAN/2024., SHE TOOK THE MOST RECENT DOSE OF FARICIMAB.
     Route: 050
     Dates: start: 20230628
  2. AVASTIN [Suspect]
     Active Substance: BEVACIZUMAB
     Indication: Macular degeneration
     Route: 065
     Dates: start: 20220808, end: 20230517
  3. BETADINE [Suspect]
     Active Substance: POVIDONE-IODINE
     Indication: Product used for unknown indication
     Route: 065

REACTIONS (8)
  - Eye pain [Recovered/Resolved]
  - Off label use [Unknown]
  - Eye oedema [Unknown]
  - Eye haemorrhage [Unknown]
  - Eye disorder [Unknown]
  - Photophobia [Unknown]
  - Eye irritation [Unknown]
  - Intraocular pressure increased [Recovered/Resolved]

NARRATIVE: CASE EVENT DATE: 20220808
